FAERS Safety Report 24074983 (Version 3)
Quarter: 2024Q3

REPORT INFORMATION
  Report Type: Spontaneous
  Country: US (occurrence: US)
  Receive Date: 20240710
  Receipt Date: 20240823
  Transmission Date: 20241016
  Serious: No
  Sender: PFIZER
  Company Number: US-PFIZER INC-PV202400072164

PATIENT
  Age: 65 Year
  Sex: Female
  Weight: 57.15 kg

DRUGS (5)
  1. TUKYSA [Suspect]
     Active Substance: TUCATINIB
     Indication: Breast cancer stage IV
     Dosage: TWO TABLETS OF 300MG  TWICE DAILY
     Route: 048
     Dates: start: 20240516
  2. TUKYSA [Suspect]
     Active Substance: TUCATINIB
     Dosage: TWO TABLETS OF 300MG BY MOUTH TWICE DAILY
     Route: 048
     Dates: start: 20240529
  3. TUKYSA [Suspect]
     Active Substance: TUCATINIB
     Dosage: 150 MG
  4. TUKYSA [Suspect]
     Active Substance: TUCATINIB
     Dosage: 150 MG; 2 TABLETS TWICE DAILY
     Dates: end: 20240802
  5. CAPECITABINE [Suspect]
     Active Substance: CAPECITABINE
     Dosage: TWO TABLETS TWO TIMES A DAY FOR 2 WEEKS ON AND ONE WEEK OFF FOR HER OFF WEEK
     Route: 048
     Dates: start: 20240514, end: 20240606

REACTIONS (13)
  - Neoplasm progression [Unknown]
  - Flushing [Unknown]
  - Rhinorrhoea [Unknown]
  - Tongue disorder [Unknown]
  - Chapped lips [Unknown]
  - Rash [Unknown]
  - Erythema [Unknown]
  - Sunburn [Unknown]
  - Mass [Unknown]
  - Secretion discharge [Unknown]
  - Cough [Unknown]
  - Retching [Unknown]
  - Blue toe syndrome [Recovering/Resolving]
